FAERS Safety Report 12642235 (Version 1)
Quarter: 2016Q3

REPORT INFORMATION
  Report Type: Report from Study
  Country: IE (occurrence: IE)
  Receive Date: 20160810
  Receipt Date: 20160810
  Transmission Date: 20161109
  Serious: Yes (Hospitalization)
  Sender: FDA-Public Use
  Company Number: IE-GUERBET LLC-1056171

PATIENT
  Age: 57 Year
  Sex: Male

DRUGS (2)
  1. NBCA (N-BUTYL CYANOACRYLATE) [Concomitant]
  2. LIPIODOL [Suspect]
     Active Substance: ETHIODIZED OIL
     Indication: SCLEROTHERAPY

REACTIONS (2)
  - Off label use [Recovered/Resolved]
  - Embolism [Recovered/Resolved]
